FAERS Safety Report 13619757 (Version 4)
Quarter: 2017Q3

REPORT INFORMATION
  Report Type: Spontaneous
  Country: DE (occurrence: DE)
  Receive Date: 20170606
  Receipt Date: 20170802
  Transmission Date: 20171127
  Serious: Yes (Death, Life-Threatening, Other)
  Sender: FDA-Public Use
  Company Number: DE-REGENERON PHARMACEUTICALS, INC.-2017-16822

PATIENT

DRUGS (6)
  1. EYLEA [Suspect]
     Active Substance: AFLIBERCEPT
     Indication: NEOVASCULAR AGE-RELATED MACULAR DEGENERATION
     Dosage: 2 MG, ONCE LEFT EYE
     Route: 047
     Dates: start: 20170529
  2. MULTAQ [Concomitant]
     Active Substance: DRONEDARONE
  3. MARCUMAR [Concomitant]
     Active Substance: PHENPROCOUMON
     Indication: PRODUCT USED FOR UNKNOWN INDICATION
     Dosage: UNK, PRN
  4. LOSARTAN. [Concomitant]
     Active Substance: LOSARTAN
  5. SIMVAHEXAL [Concomitant]
     Active Substance: SIMVASTATIN
     Dosage: UNK
  6. EYLEA [Suspect]
     Active Substance: AFLIBERCEPT
     Dosage: 2 MG, ONCE RIGHT EYE
     Route: 047
     Dates: start: 20170530

REACTIONS (2)
  - Circulatory collapse [Unknown]
  - Sudden death [Fatal]

NARRATIVE: CASE EVENT DATE: 20170530
